FAERS Safety Report 20348268 (Version 2)
Quarter: 2022Q1

REPORT INFORMATION
  Report Type: Spontaneous
  Country: US (occurrence: US)
  Receive Date: 20220119
  Receipt Date: 20220121
  Transmission Date: 20220423
  Serious: No
  Sender: FDA-Public Use
  Company Number: US-BAUSCH-BL-2022-000897

PATIENT
  Age: 48 Year
  Sex: Female

DRUGS (2)
  1. ARESTIN [Suspect]
     Active Substance: MINOCYCLINE HYDROCHLORIDE
     Indication: Periodontitis
     Route: 004
     Dates: start: 20220105
  2. ARESTIN [Suspect]
     Active Substance: MINOCYCLINE HYDROCHLORIDE

REACTIONS (2)
  - Tongue disorder [Recovering/Resolving]
  - Rash pruritic [Recovering/Resolving]

NARRATIVE: CASE EVENT DATE: 20220101
